FAERS Safety Report 13725349 (Version 5)
Quarter: 2017Q4

REPORT INFORMATION
  Report Type: Report from Study
  Country: None (occurrence: BE)
  Receive Date: 20170707
  Receipt Date: 20171012
  Transmission Date: 20180320
  Serious: Yes (Hospitalization, Other)
  Sender: FDA-Public Use
  Company Number: BE-ABBVIE-17K-013-2019004-00

PATIENT
  Age: 83 Year
  Sex: Male

DRUGS (16)
  1. MIRAPEXIN [Concomitant]
     Active Substance: PRAMIPEXOLE
     Indication: PRODUCT USED FOR UNKNOWN INDICATION
     Dosage: PRIOR TO DUODOPA
  2. GLUCOPHAGE [Concomitant]
     Active Substance: METFORMIN HYDROCHLORIDE
     Indication: PRODUCT USED FOR UNKNOWN INDICATION
  3. PROLOPA HBS [Concomitant]
     Active Substance: BENSERAZIDE\LEVODOPA
     Indication: PRODUCT USED FOR UNKNOWN INDICATION
     Dosage: FORM STRENGTH: 100MG/25MG??UNIT DOSE: 2 TABLET
  4. SOTALOL. [Concomitant]
     Active Substance: SOTALOL
     Indication: PRODUCT USED FOR UNKNOWN INDICATION
  5. CORUNO [Concomitant]
     Active Substance: MOLSIDOMINE
     Indication: PRODUCT USED FOR UNKNOWN INDICATION
  6. SIMVASTATINE [Concomitant]
     Active Substance: SIMVASTATIN
     Indication: PRODUCT USED FOR UNKNOWN INDICATION
  7. DUODOPA [Suspect]
     Active Substance: CARBIDOPA\LEVODOPA
     Dosage: MD= 5.5 ML; CD= 3.7 ML/H (AM) + 4.6 ML/H (PM) ML/H DURING 16 HRS; EDA= 2 ML
     Route: 050
     Dates: start: 20170403
  8. RIVOTRIL [Concomitant]
     Active Substance: CLONAZEPAM
     Indication: PRODUCT USED FOR UNKNOWN INDICATION
  9. ACETYLSALICYLIC ACID [Concomitant]
     Active Substance: ASPIRIN
     Indication: PRODUCT USED FOR UNKNOWN INDICATION
  10. DUODOPA [Suspect]
     Active Substance: CARBIDOPA\LEVODOPA
     Indication: PARKINSON^S DISEASE
     Dosage: MD= 9 ML; CD= 4.3 ML/H DURING 16 HRS; EDA= 1.5 ML
     Route: 050
     Dates: start: 20160105, end: 20160108
  11. PROLOPA HBS [Concomitant]
     Active Substance: BENSERAZIDE\LEVODOPA
     Dosage: 1/DAY WHEN SHUTTING DOWN PUMP
  12. TAMSULOSINE [Concomitant]
     Active Substance: TAMSULOSIN HYDROCHLORIDE
     Indication: PRODUCT USED FOR UNKNOWN INDICATION
  13. METARELAX [Concomitant]
     Indication: PRODUCT USED FOR UNKNOWN INDICATION
  14. MIRAPEXIN [Concomitant]
     Active Substance: PRAMIPEXOLE
  15. DUODOPA [Suspect]
     Active Substance: CARBIDOPA\LEVODOPA
     Dosage: DOSES CONTINUOUSLY MONITORED AND ADAPTED
     Route: 050
     Dates: start: 20160108, end: 20170403
  16. ALDACTAZINE [Concomitant]
     Active Substance: ALTHIAZIDE\SPIRONOLACTONE
     Indication: PRODUCT USED FOR UNKNOWN INDICATION

REACTIONS (7)
  - Stomal hernia [Recovering/Resolving]
  - Complication of device insertion [Unknown]
  - Stoma site infection [Unknown]
  - Stoma site discharge [Recovering/Resolving]
  - Muscular weakness [Unknown]
  - Stoma site extravasation [Recovering/Resolving]
  - Incision site haemorrhage [Recovering/Resolving]

NARRATIVE: CASE EVENT DATE: 201706
